FAERS Safety Report 8817473 (Version 2)
Quarter: 2012Q4

REPORT INFORMATION
  Report Type: 
  Country: BR (occurrence: BR)
  Receive Date: 20121001
  Receipt Date: 20121115
  Transmission Date: 20130627
  Serious: Yes (Hospitalization, Other)
  Sender: FDA-Public Use
  Company Number: BR-NOVOPROD-360099

PATIENT
  Age: 55 Year
  Sex: Female
  Weight: 75 kg

DRUGS (13)
  1. LEVEMIR FLEXPEN [Suspect]
     Indication: TYPE 1 DIABETES MELLITUS
     Dosage: 40 U, qd
     Route: 058
     Dates: start: 20070917
  2. LOSARTAN [Concomitant]
     Dosage: 1 Tab, qd
     Route: 048
  3. CLOPINE [Concomitant]
     Dosage: 1 Tab, qd
     Route: 048
  4. ONGLYZA [Concomitant]
     Indication: TYPE 1 DIABETES MELLITUS
     Dosage: 1 Tab, qd
     Route: 048
  5. METFORMIN [Concomitant]
     Indication: TYPE 1 DIABETES MELLITUS
     Dosage: 2 Tab, qd
     Route: 048
  6. CARVEDILOL [Concomitant]
     Dosage: 2 Tab, qd
     Route: 048
  7. RIVOTRIL [Concomitant]
     Indication: ANXIETY
     Dosage: 12 Gtt, qd
     Route: 048
  8. CITALOPRAM [Concomitant]
     Indication: ANXIETY
     Dosage: 1 Tab, qd
     Route: 048
  9. ATORVASTATIN [Concomitant]
     Dosage: 1 Tab, qd
     Route: 048
  10. ACETYLSALICYLIC ACID [Concomitant]
     Dosage: 1 Tab, qd
     Route: 048
  11. PROCORALAN [Concomitant]
     Dosage: 2 Tab, qd
     Route: 048
  12. PANTOPRAZOLE [Concomitant]
     Dosage: 1 Tab, qd
     Route: 048
  13. ALDACTONE                          /00006201/ [Concomitant]
     Dosage: 1 Tab, qd
     Route: 048

REACTIONS (1)
  - Cerebral infarction [Recovered/Resolved]
